FAERS Safety Report 7258523-6 (Version None)
Quarter: 2011Q1

REPORT INFORMATION
  Report Type: 
  Country: None (occurrence: None)
  Receive Date: 20110129
  Receipt Date: 20100527
  Transmission Date: 20110831
  Serious: No
  Sender: FDA-Public Use
  Company Number: US-ABBOTT-10P-163-0647644-00

PATIENT
  Age: 81 Year
  Sex: Female

DRUGS (7)
  1. CALCIUM WITH VITAMIN D [Concomitant]
     Indication: OSTEOPENIA
     Dosage: DAILY
  2. DIOVAN [Concomitant]
     Indication: HYPERTENSION
  3. HUMIRA [Suspect]
     Indication: RHEUMATOID ARTHRITIS
     Dates: start: 20030501
  4. MTX [Concomitant]
     Indication: RHEUMATOID ARTHRITIS
  5. LEVOTHYROXINE SODIUM [Concomitant]
     Indication: HYPOTHYROIDISM
  6. PANTOPRAZOLE [Concomitant]
     Indication: GASTROOESOPHAGEAL REFLUX DISEASE
  7. ACTONEL [Concomitant]
     Indication: OSTEOPENIA

REACTIONS (1)
  - INJECTION SITE HAEMATOMA [None]
